FAERS Safety Report 24801427 (Version 7)
Quarter: 2025Q4

REPORT INFORMATION
  Report Type: Report from Study
  Country: US (occurrence: US)
  Receive Date: 20250102
  Receipt Date: 20251231
  Transmission Date: 20260118
  Serious: Yes (Hospitalization)
  Sender: ABBVIE
  Company Number: US-ABBVIE-6069181

PATIENT
  Age: 75 Year
  Sex: Male

DRUGS (3)
  1. VENCLEXTA [Suspect]
     Active Substance: VENETOCLAX
     Indication: Chronic lymphocytic leukaemia
     Route: 048
     Dates: start: 20241228
  2. VENCLEXTA [Suspect]
     Active Substance: VENETOCLAX
     Indication: Chronic lymphocytic leukaemia
     Route: 048
     Dates: start: 20250101
  3. MELATONIN [Suspect]
     Active Substance: MELATONIN
     Indication: Sleep disorder
     Route: 065

REACTIONS (28)
  - Hypopnoea [Unknown]
  - Flatulence [Unknown]
  - Neuropathy peripheral [Unknown]
  - Product use complaint [Unknown]
  - Diarrhoea [Unknown]
  - Dysphagia [Unknown]
  - Neck pain [Unknown]
  - Rotator cuff syndrome [Unknown]
  - Lymphoedema [Unknown]
  - Disorientation [Unknown]
  - Weight increased [Unknown]
  - Peripheral swelling [Unknown]
  - Pain in extremity [Unknown]
  - Nightmare [Unknown]
  - Sleep disorder [Unknown]
  - Headache [Unknown]
  - Pain [Unknown]
  - Arthralgia [Unknown]
  - Back pain [Unknown]
  - Malaise [Unknown]
  - Neuralgia [Unknown]
  - Alopecia [Unknown]
  - Blood potassium decreased [Unknown]
  - Arthritis [Unknown]
  - Hypoaesthesia [Unknown]
  - Paraesthesia [Unknown]
  - Weight fluctuation [Unknown]
  - Abdominal distension [Unknown]

NARRATIVE: CASE EVENT DATE: 20240101
